FAERS Safety Report 22056267 (Version 3)
Quarter: 2025Q4

REPORT INFORMATION
  Report Type: Spontaneous
  Country: US (occurrence: US)
  Receive Date: 20230302
  Receipt Date: 20251217
  Transmission Date: 20260117
  Serious: Yes (Death, Hospitalization)
  Sender: CSL BEHRING
  Company Number: US-BEH-2023155781

PATIENT
  Age: 67 Year
  Sex: Female

DRUGS (3)
  1. PRIVIGEN [Suspect]
     Active Substance: HUMAN IMMUNOGLOBULIN G
     Indication: Hypogammaglobulinaemia
     Dosage: 25 GRAM, QMT
     Route: 042
     Dates: start: 202112
  2. PRIVIGEN [Suspect]
     Active Substance: HUMAN IMMUNOGLOBULIN G
     Dosage: 20 G, EVERY 4 WEEKS
     Route: 042
     Dates: start: 202112
  3. PRIVIGEN [Suspect]
     Active Substance: HUMAN IMMUNOGLOBULIN G
     Dosage: 25 GRAM, QMT
     Route: 042
     Dates: start: 202112

REACTIONS (5)
  - Death [Fatal]
  - Hypotension [Unknown]
  - Blood glucose decreased [Unknown]
  - Ill-defined disorder [Unknown]
  - Hospitalisation [Unknown]

NARRATIVE: CASE EVENT DATE: 20230213
